FAERS Safety Report 9647397 (Version 1)
Quarter: 2013Q4

REPORT INFORMATION
  Report Type: Spontaneous
  Country: NL (occurrence: NL)
  Receive Date: 20131028
  Receipt Date: 20131028
  Transmission Date: 20140711
  Serious: Yes (Death)
  Sender: FDA-Public Use
  Company Number: NL-AMGEN-NLDSP2013075203

PATIENT
  Age: 70 Year
  Sex: Male

DRUGS (1)
  1. NEULASTA [Suspect]
     Indication: NEUTROPENIA
     Dosage: UNK UNK, Q3WK
     Route: 065
     Dates: start: 20130905

REACTIONS (1)
  - Death [Fatal]
